FAERS Safety Report 15327135 (Version 1)
Quarter: 2018Q3

REPORT INFORMATION
  Report Type: Spontaneous
  Country: US (occurrence: US)
  Receive Date: 20180823
  Receipt Date: 20180823
  Transmission Date: 20181010
  Serious: No
  Sender: FDA-Public Use
  Company Number: None

PATIENT
  Age: 30 Year
  Sex: Male
  Weight: 171 kg

DRUGS (3)
  1. VYVANSE [Concomitant]
     Active Substance: LISDEXAMFETAMINE DIMESYLATE
  2. ZENZEDI/DEXTROAMPHETAMINE [Concomitant]
  3. DEXTROAMPHETAMINE. [Suspect]
     Active Substance: DEXTROAMPHETAMINE
     Indication: ATTENTION DEFICIT/HYPERACTIVITY DISORDER
     Dosage: ?          QUANTITY:3 TABLET(S);?
     Route: 048

REACTIONS (6)
  - Product substitution issue [None]
  - Drug effect decreased [None]
  - Discomfort [None]
  - Condition aggravated [None]
  - Drug effect delayed [None]
  - Anxiety [None]

NARRATIVE: CASE EVENT DATE: 20180823
